FAERS Safety Report 5149062-7 (Version None)
Quarter: 2006Q4

REPORT INFORMATION
  Report Type: 
  Country: None (occurrence: None)
  Receive Date: 20061113
  Receipt Date: 20061108
  Transmission Date: 20070319
  Serious: Yes (Other)
  Sender: FDA-Public Use
  Company Number: US-JNJFOC-20061102040

PATIENT
  Sex: Female
  Weight: 82.1 kg

DRUGS (4)
  1. REMICADE [Suspect]
     Indication: RHEUMATOID ARTHRITIS
     Route: 042
  2. MOBIC [Concomitant]
  3. ULTRACET [Concomitant]
  4. LIDODERM PATCH [Concomitant]

REACTIONS (1)
  - BREAST CANCER [None]
